FAERS Safety Report 21778439 (Version 1)
Quarter: 2022Q4

REPORT INFORMATION
  Report Type: Spontaneous
  Country: US (occurrence: US)
  Receive Date: 20221226
  Receipt Date: 20221226
  Transmission Date: 20230112
  Serious: No
  Sender: FDA-Public Use
  Company Number: US-MIGRATION_PFIZER-2022BHV003095

PATIENT

DRUGS (4)
  1. NURTEC ODT [Suspect]
     Active Substance: RIMEGEPANT SULFATE
     Indication: Facial pain
     Dosage: SAMPLE
     Route: 048
  2. ACETAMINOPHEN [Concomitant]
     Active Substance: ACETAMINOPHEN
     Indication: Facial pain
     Route: 065
  3. IBUPROFEN [Concomitant]
     Active Substance: IBUPROFEN
     Indication: Facial pain
     Route: 065
  4. HYDROCODONE [Concomitant]
     Active Substance: HYDROCODONE
     Indication: Facial pain
     Dosage: A FEW SMALL DOSES, LIKE A PILL CUT IN HALF, OF HYDROCODONE
     Route: 065

REACTIONS (1)
  - Off label use [Unknown]
